FAERS Safety Report 17803150 (Version 1)
Quarter: 2020Q2

REPORT INFORMATION
  Report Type: Spontaneous
  Country: US (occurrence: US)
  Receive Date: 20200519
  Receipt Date: 20200519
  Transmission Date: 20200714
  Serious: Yes (Hospitalization)
  Sender: FDA-Public Use
  Company Number: None

PATIENT
  Sex: Male

DRUGS (4)
  1. SPIRONOLACTONE, HYDRALAZINE, ANORO ELLIPT, METOPROLOL SUCCINATE [Concomitant]
  2. ALLOPURINOL, ELIQUIS, ATORVASTATIN, CARVEDILOL, MIRALAX, DULCOLAX [Concomitant]
  3. SPRYCEL [Suspect]
     Active Substance: DASATINIB
     Indication: CHRONIC MYELOID LEUKAEMIA
     Route: 048
     Dates: start: 20181201
  4. BUMEX, VITAMIN D3, FLOMAX, CENTRUM, FUROSEMIDE, LOSARTAN POTASSIUM [Concomitant]

REACTIONS (1)
  - Haemoglobin decreased [None]
